FAERS Safety Report 5675758-4 (Version None)
Quarter: 2008Q1

REPORT INFORMATION
  Report Type: 
  Country: None (occurrence: None)
  Receive Date: 20080318
  Receipt Date: 20080310
  Transmission Date: 20080703
  Serious: Yes (Other)
  Sender: FDA-Public Use
  Company Number: CHPA2008US04454

PATIENT
  Age: 22 Year
  Sex: Male

DRUGS (1)
  1. THRIVE [Suspect]
     Dosage: ORAL
     Route: 048

REACTIONS (1)
  - HAEMATEMESIS [None]
